FAERS Safety Report 9312581 (Version 1)
Quarter: 2013Q2

REPORT INFORMATION
  Report Type: Spontaneous
  Country: US (occurrence: US)
  Receive Date: 20130528
  Receipt Date: 20130528
  Transmission Date: 20140414
  Serious: Yes (Other)
  Sender: FDA-Public Use
  Company Number: US-TEVA-407206USA

PATIENT
  Age: 43 Year
  Sex: Female

DRUGS (2)
  1. COPAXONE [Suspect]
     Indication: MULTIPLE SCLEROSIS
  2. AVONEX [Suspect]
     Indication: MULTIPLE SCLEROSIS
     Dosage: EVERY WEEK
     Route: 030
     Dates: start: 201208

REACTIONS (3)
  - Convulsion [Not Recovered/Not Resolved]
  - Somatoform disorder [Unknown]
  - Sensory loss [Unknown]
